FAERS Safety Report 17882720 (Version 2)
Quarter: 2020Q3

REPORT INFORMATION
  Report Type: Report from Study
  Country: FR (occurrence: FR)
  Receive Date: 20200611
  Receipt Date: 20200902
  Transmission Date: 20201103
  Serious: Yes (Hospitalization)
  Sender: FDA-Public Use
  Company Number: FR-ROCHE-2616413

PATIENT
  Age: 63 Year
  Sex: Male

DRUGS (5)
  1. AMOXICILLIN. [Concomitant]
     Active Substance: AMOXICILLIN
  2. OBINUTUZUMAB. [Suspect]
     Active Substance: OBINUTUZUMAB
     Indication: MANTLE CELL LYMPHOMA
     Dosage: ON 20/FEB/2020, HE RECEIVED LAST DOSE OF OBINUTUZUMAB BEFORE SERIOUS ADVERSE EVENT.
     Route: 042
     Dates: start: 20171117
  3. DHAP [Concomitant]
     Active Substance: CISPLATIN\CYTARABINE\DEXAMETHASONE
     Indication: LYMPHOMA
     Dates: start: 20180226, end: 20180307
  4. LOXEN (FRANCE) [Concomitant]
     Active Substance: NICARDIPINE HYDROCHLORIDE
     Indication: MANTLE CELL LYMPHOMA
  5. BEAM [Concomitant]
     Active Substance: SODIUM FLUORIDE
     Indication: LYMPHOMA
     Dates: start: 20171117, end: 20180121

REACTIONS (1)
  - Pneumonia [Recovered/Resolved]

NARRATIVE: CASE EVENT DATE: 20200303
